FAERS Safety Report 5832643-2 (Version None)
Quarter: 2008Q3

REPORT INFORMATION
  Report Type: 
  Country: None (occurrence: None)
  Receive Date: 20080730
  Receipt Date: 20080715
  Transmission Date: 20090109
  Serious: Yes (Hospitalization)
  Sender: FDA-Public Use
  Company Number: 8034826

PATIENT
  Age: 44 Year
  Sex: Female

DRUGS (4)
  1. KEPPRA [Suspect]
     Indication: EPILEPSY
     Dosage: 500 MG /D PO
     Route: 048
     Dates: start: 20071114, end: 20071118
  2. KEPPRA [Suspect]
     Indication: EPILEPSY
     Dates: start: 20071130
  3. TEGRETOL [Suspect]
     Indication: EPILEPSY
     Dosage: 200 MG /D PO
     Route: 048
     Dates: start: 20071005, end: 20071117
  4. TIKACILLIN [Suspect]
     Indication: LYMPHADENITIS
     Dosage: PO
     Route: 048
     Dates: start: 20071026, end: 20071105

REACTIONS (13)
  - ALANINE AMINOTRANSFERASE INCREASED [None]
  - ASPARTATE AMINOTRANSFERASE INCREASED [None]
  - BLOOD ALKALINE PHOSPHATASE INCREASED [None]
  - BLOOD LACTATE DEHYDROGENASE INCREASED [None]
  - CONVULSION [None]
  - DRUG INEFFECTIVE [None]
  - GAMMA-GLUTAMYLTRANSFERASE INCREASED [None]
  - LYMPHADENOPATHY [None]
  - OEDEMA PERIPHERAL [None]
  - PRURITUS [None]
  - PYREXIA [None]
  - RASH [None]
  - SWELLING FACE [None]
